FAERS Safety Report 4433494-6 (Version None)
Quarter: 2004Q3

REPORT INFORMATION
  Report Type: 
  Country: None (occurrence: None)
  Receive Date: 20040826
  Receipt Date: 20040816
  Transmission Date: 20050211
  Serious: Yes (Hospitalization, Other)
  Sender: FDA-Public Use
  Company Number: NSADSS2003012765

PATIENT
  Sex: Female
  Weight: 55.79 kg

DRUGS (14)
  1. REMICADE [Suspect]
     Route: 041
  2. REMICADE [Suspect]
     Route: 041
  3. REMICADE [Suspect]
     Route: 041
  4. REMICADE [Suspect]
     Route: 041
  5. REMICADE [Suspect]
     Route: 041
  6. REMICADE [Suspect]
     Route: 041
  7. REMICADE [Suspect]
     Indication: RHEUMATOID ARTHRITIS
     Route: 041
  8. ZOLOFT [Concomitant]
  9. METHOTREXATE [Concomitant]
  10. SULFASALAZINE [Concomitant]
  11. ESTRACE [Concomitant]
  12. PROVERA [Concomitant]
  13. SYNTHROID [Concomitant]
     Indication: HYPOTHYROIDISM
  14. PREDNISONE [Concomitant]

REACTIONS (11)
  - CARDIAC FAILURE CONGESTIVE [None]
  - CHEST DISCOMFORT [None]
  - DYSPNOEA [None]
  - HEART RATE DECREASED [None]
  - PNEUMOCYSTIS CARINII INFECTION [None]
  - PNEUMOCYSTIS CARINII PNEUMONIA [None]
  - PNEUMONIA [None]
  - PNEUMONITIS [None]
  - PULMONARY CONGESTION [None]
  - PULMONARY OEDEMA [None]
  - RASH [None]
